FAERS Safety Report 5150534-X (Version None)
Quarter: 2006Q4

REPORT INFORMATION
  Report Type: 
  Country: None (occurrence: None)
  Receive Date: 20061108
  Receipt Date: 20061026
  Transmission Date: 20070319
  Serious: Yes (Hospitalization, Other)
  Sender: FDA-Public Use
  Company Number: 2006069957

PATIENT
  Age: 25 Year
  Sex: Male
  Weight: 76 kg

DRUGS (8)
  1. LYRICA [Suspect]
     Indication: PARALYSIS
     Dosage: 600 MG (300 MG, 2 IN 1 D), ORAL
     Route: 048
     Dates: start: 20060213
  2. COCAINE                  (COCAINE) [Concomitant]
  3. ROHYPNOL              (FLUNITRAZEPAM) [Concomitant]
  4. DIAZEPAM [Concomitant]
  5. VIVAL                         (DIAZEPAM) [Concomitant]
  6. AMPHETAMINE                     (AMFETAMINE) [Concomitant]
  7. CARISOPRODOL [Concomitant]
  8. CLONAZEPAM [Concomitant]

REACTIONS (22)
  - ABNORMAL BEHAVIOUR [None]
  - AGGRESSION [None]
  - AGITATION [None]
  - ALCOHOL USE [None]
  - ANGER [None]
  - CRYING [None]
  - DEATH OF FRIEND [None]
  - DRUG ABUSER [None]
  - DRUG INEFFECTIVE [None]
  - FEELING ABNORMAL [None]
  - FEELING JITTERY [None]
  - FLAT AFFECT [None]
  - HEAD DISCOMFORT [None]
  - INCORRECT DOSE ADMINISTERED [None]
  - INSOMNIA [None]
  - INTENTIONAL DRUG MISUSE [None]
  - IRRITABILITY [None]
  - MOOD ALTERED [None]
  - OBSESSIVE THOUGHTS [None]
  - PSYCHOMOTOR HYPERACTIVITY [None]
  - PSYCHOTIC DISORDER [None]
  - RESTLESSNESS [None]
